FAERS Safety Report 5306372-8 (Version None)
Quarter: 2007Q2

REPORT INFORMATION
  Report Type: 
  Country: None (occurrence: None)
  Receive Date: 20070424
  Receipt Date: 20070419
  Transmission Date: 20071010
  Serious: Yes (Hospitalization, Other)
  Sender: FDA-Public Use
  Company Number: DE-BAYER-200710423BVD

PATIENT
  Age: 76 Year
  Sex: Male
  Weight: 65 kg

DRUGS (3)
  1. SORAFENIB [Suspect]
     Indication: RENAL CELL CARCINOMA STAGE UNSPECIFIED
     Route: 048
     Dates: start: 20061025, end: 20070317
  2. ASPIRIN [Concomitant]
     Route: 065
     Dates: end: 20070313
  3. BISOPRODOL FUMARATE [Concomitant]
     Route: 065

REACTIONS (1)
  - ISCHAEMIC CEREBRAL INFARCTION [None]
